FAERS Safety Report 7770644-8 (Version None)
Quarter: 2011Q3

REPORT INFORMATION
  Report Type: 
  Country: None (occurrence: None)
  Receive Date: 20110922
  Receipt Date: 20110919
  Transmission Date: 20111222
  Serious: Yes (Hospitalization)
  Sender: FDA-Public Use
  Company Number: PHHY2011AU51789

PATIENT
  Sex: Male

DRUGS (2)
  1. CLOZAPINE [Suspect]
     Dosage: 700 MG
     Dates: start: 20041223
  2. CLOZAPINE [Suspect]
     Dosage: 600 MG
     Dates: start: 20110919

REACTIONS (4)
  - GENERAL PHYSICAL CONDITION [None]
  - DEPRESSION [None]
  - BACK PAIN [None]
  - PSYCHIATRIC SYMPTOM [None]
